FAERS Safety Report 7291709-3 (Version None)
Quarter: 2011Q1

REPORT INFORMATION
  Report Type: 
  Country: None (occurrence: None)
  Receive Date: 20110214
  Receipt Date: 20110204
  Transmission Date: 20110831
  Serious: Yes (Other)
  Sender: FDA-Public Use
  Company Number: BR-PFIZER INC-2011023653

PATIENT
  Age: 31 Year
  Sex: Female
  Weight: 62 kg

DRUGS (5)
  1. HALDOL [Concomitant]
     Indication: DEPRESSION
     Dosage: UNK MG, UNK
     Dates: start: 19960101
  2. AKINETON [Concomitant]
     Indication: DEPRESSION
     Dosage: UNK
     Dates: start: 19960101
  3. DEPO-PROVERA [Suspect]
     Indication: MENSTRUAL DISCOMFORT
     Dosage: 150 MG, EVERY 3 MONTHS
     Route: 030
     Dates: end: 20090101
  4. RIVOTRIL [Concomitant]
     Indication: INSOMNIA
     Dosage: UNK
     Dates: start: 20060101
  5. DEPO-PROVERA [Suspect]
     Indication: CONTRACEPTION
     Dosage: 150 MG, EVERY 3 MONTHS
     Route: 030
     Dates: start: 20050101, end: 20080101

REACTIONS (6)
  - METRORRHAGIA [None]
  - VAGINAL DISCHARGE [None]
  - NAUSEA [None]
  - VOMITING [None]
  - INFERTILITY [None]
  - ENDOMETRIAL DISORDER [None]
